FAERS Safety Report 8828761 (Version 1)
Quarter: 2012Q4

REPORT INFORMATION
  Report Type: 
  Country: ES (occurrence: ES)
  Receive Date: 20121008
  Receipt Date: 20121008
  Transmission Date: 20130627
  Serious: Yes (Other)
  Sender: FDA-Public Use
  Company Number: ES-ROCHE-544980

PATIENT

DRUGS (2)
  1. XELODA [Suspect]
     Indication: RECTAL CANCER
     Dosage: GIVEN FOR 5 DAYS OF EACH WEEK
     Route: 065
  2. OXALIPLATIN [Suspect]
     Indication: RECTAL CANCER
     Dosage: GIVEN ON DAY 1 OF EACH WEEK
     Route: 065

REACTIONS (12)
  - Diarrhoea [Unknown]
  - Asthenia [Unknown]
  - Lymphopenia [Unknown]
  - Nausea [Unknown]
  - Vomiting [Unknown]
  - Abdominal discomfort [Unknown]
  - Decreased appetite [Unknown]
  - Alanine aminotransferase increased [Unknown]
  - Aspartate aminotransferase increased [Unknown]
  - Proctitis [Unknown]
  - Chest pain [Unknown]
  - Cerebral ischaemia [Unknown]
